FAERS Safety Report 9458773 (Version 2)
Quarter: 2013Q3

REPORT INFORMATION
  Report Type: Report from Study
  Country: GB (occurrence: GB)
  Receive Date: 20130814
  Receipt Date: 20130819
  Transmission Date: 20140515
  Serious: Yes (Other)
  Sender: FDA-Public Use
  Company Number: GB-VERTEX PHARMACEUTICALS INC-2013-008757

PATIENT
  Age: 32 Year
  Sex: Male

DRUGS (3)
  1. VX-950 (TELAPREVIR) [Suspect]
     Indication: HEPATITIS C
     Dosage: 750 MG, TID
     Route: 048
     Dates: start: 20130603
  2. RIBAVIRIN [Concomitant]
     Indication: HEPATITIS C
     Dosage: UNK UNK, BID
     Route: 048
     Dates: start: 20130603
  3. PEGINTERFERON ALFA [Concomitant]
     Indication: HEPATITIS C
     Dosage: UNK, QW
     Route: 058
     Dates: start: 20130603

REACTIONS (1)
  - Drug dose omission [Unknown]
